FAERS Safety Report 24723546 (Version 2)
Quarter: 2024Q4

REPORT INFORMATION
  Report Type: Spontaneous
  Country: US (occurrence: US)
  Receive Date: 20241211
  Receipt Date: 20241225
  Transmission Date: 20250115
  Serious: No
  Sender: SANOFI AVENTIS
  Company Number: US-SA-2024SA362324

PATIENT
  Age: 24 Year
  Sex: Female

DRUGS (1)
  1. DUPIXENT [Suspect]
     Active Substance: DUPILUMAB
     Indication: Oesophagitis
     Dosage: 300 MG, QW
     Route: 058
     Dates: start: 20241117

REACTIONS (13)
  - Nasopharyngitis [Recovered/Resolved]
  - Nausea [Recovered/Resolved]
  - Lymphadenopathy [Recovered/Resolved]
  - Fatigue [Recovered/Resolved]
  - Asthenia [Recovered/Resolved]
  - Myalgia [Recovered/Resolved]
  - Headache [Recovered/Resolved]
  - Product dose omission issue [Unknown]
  - Dysphagia [Unknown]
  - Injection site warmth [Not Recovered/Not Resolved]
  - Injection site pain [Unknown]
  - Injection site erythema [Not Recovered/Not Resolved]
  - Product use in unapproved indication [Unknown]

NARRATIVE: CASE EVENT DATE: 20240101
